FAERS Safety Report 8609202-1 (Version None)
Quarter: 2012Q3

REPORT INFORMATION
  Report Type: 
  Country: None (occurrence: None)
  Receive Date: 20120821
  Receipt Date: 20120808
  Transmission Date: 20120928
  Serious: No
  Sender: FDA-Public Use
  Company Number: US-ASTRAZENECA-2012SE55975

PATIENT
  Age: 49 Year
  Sex: Male
  Weight: 88.5 kg

DRUGS (13)
  1. NEXIUM [Suspect]
     Indication: GASTROOESOPHAGEAL REFLUX DISEASE
     Route: 048
     Dates: start: 20040101, end: 20100101
  2. ALLOPURINOL [Concomitant]
     Indication: GOUT
  3. CYMBALTA [Concomitant]
     Indication: DEPRESSION
  4. LAMOTRIGINE [Concomitant]
     Indication: DEPRESSION
  5. ROPINIROLE [Concomitant]
     Indication: DEPRESSION
  6. OMEPRAZOLE [Suspect]
     Route: 048
  7. OMEPRAZOLE [Suspect]
     Indication: GASTROOESOPHAGEAL REFLUX DISEASE
     Route: 048
     Dates: start: 20100101, end: 20120301
  8. OMEPRAZOLE [Suspect]
     Route: 048
     Dates: start: 20120301, end: 20120501
  9. VITAMIN D [Concomitant]
     Indication: VITAMIN SUPPLEMENTATION
  10. SIMVASTATIN [Concomitant]
     Indication: DEPRESSION
  11. PROPRANOLOL [Concomitant]
     Indication: DEPRESSION
  12. CLONAZAPINE [Concomitant]
     Indication: DEPRESSION
  13. SAVELLA [Concomitant]
     Indication: FIBROMYALGIA

REACTIONS (4)
  - GASTROOESOPHAGEAL REFLUX DISEASE [None]
  - OFF LABEL USE [None]
  - DYSPHAGIA [None]
  - DRUG EFFECT DECREASED [None]
